FAERS Safety Report 7991776-5 (Version None)
Quarter: 2011Q4

REPORT INFORMATION
  Report Type: 
  Country: None (occurrence: None)
  Receive Date: 20111219
  Receipt Date: 20111214
  Transmission Date: 20120403
  Serious: Yes (Death, Other)
  Sender: FDA-Public Use
  Company Number: PHHY2011BE109194

PATIENT
  Age: 80 Year
  Sex: Female

DRUGS (1)
  1. CEFEPIME HYDROCHLORIDE [Suspect]
     Indication: LUNG INFECTION

REACTIONS (5)
  - BLOOD CREATININE INCREASED [None]
  - CENTRAL NERVOUS SYSTEM LESION [None]
  - EPILEPSY [None]
  - DEATH [None]
  - HEPATIC ENZYME INCREASED [None]
